FAERS Safety Report 24275185 (Version 2)
Quarter: 2024Q4

REPORT INFORMATION
  Report Type: Report from Study
  Country: US (occurrence: US)
  Receive Date: 20240903
  Receipt Date: 20241031
  Transmission Date: 20250115
  Serious: Yes (Other)
  Sender: ABBVIE
  Company Number: US-ABBVIE-5899693

PATIENT
  Age: 17 Year
  Sex: Female

DRUGS (1)
  1. UPADACITINIB [Suspect]
     Active Substance: UPADACITINIB
     Indication: Eczema
     Route: 048
     Dates: start: 2023

REACTIONS (4)
  - Retinal tear [Unknown]
  - Chromaturia [Not Recovered/Not Resolved]
  - Off label use [Unknown]
  - Wisdom teeth removal [Unknown]
